FAERS Safety Report 7435553-2 (Version None)
Quarter: 2011Q2

REPORT INFORMATION
  Report Type: 
  Country: None (occurrence: None)
  Receive Date: 20110425
  Receipt Date: 20110419
  Transmission Date: 20111010
  Serious: Yes (Other)
  Sender: FDA-Public Use
  Company Number: US-PFIZER INC-2008051409

PATIENT
  Sex: Female
  Weight: 84 kg

DRUGS (8)
  1. ESTRATAB [Suspect]
     Indication: HORMONE REPLACEMENT THERAPY
     Dosage: UNK,
     Dates: start: 19940901, end: 20001201
  2. OGEN [Suspect]
     Indication: HORMONE REPLACEMENT THERAPY
     Dosage: UNK,
     Route: 048
     Dates: start: 19930601, end: 20010801
  3. ESTROPIPATE [Suspect]
     Indication: HORMONE REPLACEMENT THERAPY
     Dosage: UNK,
     Dates: start: 20010201, end: 20010801
  4. CYCRIN [Suspect]
     Indication: HORMONE REPLACEMENT THERAPY
     Dosage: UNK,
     Dates: start: 19961101, end: 19991101
  5. CARDURA [Concomitant]
     Indication: BLOOD PRESSURE
     Dosage: UNK
     Dates: start: 19960101
  6. ATENOLOL [Concomitant]
     Indication: BLOOD PRESSURE
     Dosage: UNK
     Dates: start: 19960101
  7. MEDROXYPROGESTERONE ACETATE [Suspect]
     Indication: HORMONE REPLACEMENT THERAPY
     Dosage: UNK,
     Dates: start: 19991201, end: 20010801
  8. PROVERA [Suspect]
     Indication: HORMONE REPLACEMENT THERAPY
     Dosage: UNK,
     Route: 048
     Dates: start: 19930601, end: 20010801

REACTIONS (1)
  - BREAST CANCER FEMALE [None]
